FAERS Safety Report 5333490-0 (Version None)
Quarter: 2007Q2

REPORT INFORMATION
  Report Type: 
  Country: None (occurrence: None)
  Receive Date: 20070522
  Receipt Date: 20070522
  Transmission Date: 20071010
  Serious: Yes (Life-Threatening, Hospitalization, Disabling, Other)
  Sender: FDA-Public Use
  Company Number: None

PATIENT
  Age: 26 Year
  Sex: Male
  Weight: 77.1115 kg

DRUGS (1)
  1. CLINDAMYCIN / GENERIC FORM [Suspect]
     Indication: ORAL INFECTION
     Dates: start: 20061020

REACTIONS (2)
  - CLOSTRIDIUM COLITIS [None]
  - SEPTIC SHOCK [None]
